FAERS Safety Report 9098151 (Version 1)
Quarter: 2013Q1

REPORT INFORMATION
  Report Type: Spontaneous
  Country: IT (occurrence: IT)
  Receive Date: 20130213
  Receipt Date: 20130213
  Transmission Date: 20140127
  Serious: Yes (Other)
  Sender: FDA-Public Use
  Company Number: IT-ELI_LILLY_AND_COMPANY-IT201302001829

PATIENT
  Sex: Female

DRUGS (1)
  1. FORSTEO [Suspect]

REACTIONS (1)
  - Basal cell carcinoma [Unknown]
